FAERS Safety Report 13237032 (Version 1)
Quarter: 2017Q1

REPORT INFORMATION
  Report Type: Spontaneous
  Country: AT (occurrence: AT)
  Receive Date: 20170215
  Receipt Date: 20170215
  Transmission Date: 20170428
  Serious: Yes (Hospitalization)
  Sender: FDA-Public Use
  Company Number: AT-TEVA-738051ISR

PATIENT
  Age: 30 Year
  Sex: Female

DRUGS (51)
  1. TOPIRAMATE. [Suspect]
     Active Substance: TOPIRAMATE
     Route: 065
     Dates: start: 20151229, end: 20151230
  2. RIVOTRIL [Concomitant]
     Active Substance: CLONAZEPAM
     Route: 065
     Dates: start: 20151106, end: 20151106
  3. RIVOTRIL [Concomitant]
     Active Substance: CLONAZEPAM
     Route: 065
     Dates: start: 20151215, end: 20151226
  4. TRITTICO RETARD [Concomitant]
     Active Substance: TRAZODONE HYDROCHLORIDE
     Route: 065
     Dates: start: 20151109, end: 20151202
  5. TRITTICO RETARD [Concomitant]
     Active Substance: TRAZODONE HYDROCHLORIDE
     Route: 065
     Dates: start: 20151203, end: 20160118
  6. LEPONEX [Concomitant]
     Active Substance: CLOZAPINE
     Route: 065
     Dates: start: 20151227, end: 20151227
  7. SYCREST [Concomitant]
     Active Substance: ASENAPINE MALEATE
     Route: 065
     Dates: start: 20151212, end: 20151214
  8. GASTROZEPIN [Concomitant]
     Active Substance: PIRENZEPINE HYDROCHLORIDE
     Route: 065
     Dates: start: 20151222, end: 20160118
  9. LAEVOLAC [Concomitant]
     Active Substance: LACTULOSE
     Route: 065
     Dates: start: 20160116, end: 20160117
  10. DEPAKINE CRONO [Suspect]
     Active Substance: VALPROIC ACID
     Route: 065
     Dates: start: 20160108, end: 20160111
  11. LEPONEX [Concomitant]
     Active Substance: CLOZAPINE
     Route: 065
     Dates: start: 20151218, end: 20151226
  12. SYCREST [Concomitant]
     Active Substance: ASENAPINE MALEATE
     Route: 065
     Dates: start: 20151210, end: 20151211
  13. SYCREST [Concomitant]
     Active Substance: ASENAPINE MALEATE
     Route: 065
     Dates: start: 20151216, end: 20151220
  14. TOPIRAMATE. [Suspect]
     Active Substance: TOPIRAMATE
     Route: 065
     Dates: start: 20160111, end: 20160113
  15. LAMICTAL [Concomitant]
     Active Substance: LAMOTRIGINE
     Route: 065
     Dates: start: 201506, end: 20161104
  16. RIVOTRIL [Concomitant]
     Active Substance: CLONAZEPAM
     Route: 065
     Dates: start: 20151202, end: 20151202
  17. RIVOTRIL [Concomitant]
     Active Substance: CLONAZEPAM
     Route: 065
     Dates: start: 20151227, end: 20160103
  18. RIVOTRIL [Concomitant]
     Active Substance: CLONAZEPAM
     Route: 065
     Dates: start: 20160104, end: 20160104
  19. LEPONEX [Concomitant]
     Active Substance: CLOZAPINE
     Route: 065
     Dates: start: 20160120
  20. DEPAKINE CRONO [Suspect]
     Active Substance: VALPROIC ACID
     Route: 065
     Dates: start: 20160112, end: 20160113
  21. DEPAKINE CRONO [Suspect]
     Active Substance: VALPROIC ACID
     Route: 065
     Dates: start: 20160114, end: 20160114
  22. LAMICTAL [Concomitant]
     Active Substance: LAMOTRIGINE
     Route: 065
     Dates: start: 20151105, end: 20161108
  23. TRITTICO RETARD [Concomitant]
     Active Substance: TRAZODONE HYDROCHLORIDE
     Route: 065
     Dates: start: 20151107, end: 20151107
  24. TRITTICO RETARD [Concomitant]
     Active Substance: TRAZODONE HYDROCHLORIDE
     Route: 065
     Dates: start: 20151108, end: 20151108
  25. LEPONEX [Concomitant]
     Active Substance: CLOZAPINE
     Route: 065
     Dates: start: 20151207, end: 20151213
  26. SYCREST [Concomitant]
     Active Substance: ASENAPINE MALEATE
     Route: 065
     Dates: start: 20151215, end: 20151215
  27. TOPIRAMATE. [Suspect]
     Active Substance: TOPIRAMATE
     Route: 065
     Dates: start: 20160107, end: 20160107
  28. TOPIRAMATE. [Suspect]
     Active Substance: TOPIRAMATE
     Route: 065
     Dates: start: 20160108, end: 20160110
  29. RIVOTRIL [Concomitant]
     Active Substance: CLONAZEPAM
     Route: 065
     Dates: start: 20160119, end: 20160119
  30. LEPONEX [Concomitant]
     Active Substance: CLOZAPINE
     Route: 065
     Dates: start: 20151228, end: 20160119
  31. SYCREST [Concomitant]
     Active Substance: ASENAPINE MALEATE
     Route: 065
     Dates: start: 20151221, end: 20151230
  32. GASTROZEPIN [Concomitant]
     Active Substance: PIRENZEPINE HYDROCHLORIDE
     Route: 065
     Dates: start: 20151217, end: 20151221
  33. LAEVOLAC [Concomitant]
     Active Substance: LACTULOSE
     Route: 065
     Dates: start: 20160118, end: 20160118
  34. DEPAKINE CRONO [Suspect]
     Active Substance: VALPROIC ACID
     Route: 065
     Dates: start: 20160107, end: 20160107
  35. LAMICTAL [Concomitant]
     Active Substance: LAMOTRIGINE
     Route: 065
     Dates: start: 20151214, end: 20161214
  36. RIVOTRIL [Concomitant]
     Active Substance: CLONAZEPAM
     Route: 065
     Dates: start: 20160120
  37. LAEVOLAC [Concomitant]
     Active Substance: LACTULOSE
     Route: 065
     Dates: start: 20160115, end: 20160115
  38. TOPIRAMATE. [Suspect]
     Active Substance: TOPIRAMATE
     Route: 065
     Dates: start: 20151223, end: 20151228
  39. TOPIRAMATE. [Suspect]
     Active Substance: TOPIRAMATE
     Route: 065
     Dates: start: 20151231, end: 20160104
  40. TOPIRAMATE. [Suspect]
     Active Substance: TOPIRAMATE
     Route: 065
     Dates: start: 20160105, end: 20160106
  41. LAMICTAL [Concomitant]
     Active Substance: LAMOTRIGINE
     Route: 065
     Dates: start: 20151109, end: 20161122
  42. RIVOTRIL [Concomitant]
     Active Substance: CLONAZEPAM
     Route: 065
     Dates: start: 20151104, end: 20151105
  43. RIVOTRIL [Concomitant]
     Active Substance: CLONAZEPAM
     Route: 065
     Dates: start: 20151203, end: 20151214
  44. TRITTICO RETARD [Concomitant]
     Active Substance: TRAZODONE HYDROCHLORIDE
     Route: 065
     Dates: start: 20160119
  45. SYCREST [Concomitant]
     Active Substance: ASENAPINE MALEATE
     Route: 065
     Dates: start: 20151231, end: 20160110
  46. STERIMAR NASENSPRAY [Concomitant]
     Route: 065
     Dates: start: 20160103, end: 20160115
  47. LAMICTAL [Concomitant]
     Active Substance: LAMOTRIGINE
     Route: 065
     Dates: start: 20151123, end: 20161213
  48. LAMICTAL [Concomitant]
     Active Substance: LAMOTRIGINE
     Route: 065
     Dates: start: 20151215
  49. RIVOTRIL [Concomitant]
     Active Substance: CLONAZEPAM
     Route: 065
     Dates: start: 20160105, end: 20160118
  50. LEPONEX [Concomitant]
     Active Substance: CLOZAPINE
     Route: 065
     Dates: start: 20151217, end: 20151217
  51. SYCREST [Concomitant]
     Active Substance: ASENAPINE MALEATE
     Route: 065
     Dates: start: 20160111, end: 20160112

REACTIONS (1)
  - Hyperammonaemia [Recovered/Resolved]

NARRATIVE: CASE EVENT DATE: 20160113
